FAERS Safety Report 5770758-8 (Version None)
Quarter: 2008Q2

REPORT INFORMATION
  Report Type: 
  Country: None (occurrence: None)
  Receive Date: 20080613
  Receipt Date: 20080509
  Transmission Date: 20081010
  Serious: No
  Sender: FDA-Public Use
  Company Number: US-ABBOTT-08P-163-0451474-00

PATIENT
  Sex: Female
  Weight: 72.64 kg

DRUGS (4)
  1. HUMIRA [Suspect]
     Indication: PSORIATIC ARTHROPATHY
     Dosage: PEN
     Dates: start: 20080301
  2. VICODIN [Concomitant]
     Indication: PAIN
     Dosage: 7.5/ 500 MG AS REQUIRED
     Route: 048
     Dates: start: 20071201
  3. METHOTREXATE [Concomitant]
     Indication: PSORIATIC ARTHROPATHY
     Dosage: 2.5 MG X 6 TABLETS A WEEK
     Route: 048
     Dates: start: 20020101
  4. FOLIC ACID [Concomitant]
     Indication: PSORIATIC ARTHROPATHY
     Route: 048
     Dates: start: 20020101

REACTIONS (3)
  - DRUG INEFFECTIVE [None]
  - PHARYNGEAL OEDEMA [None]
  - URTICARIA [None]
